FAERS Safety Report 14734048 (Version 1)
Quarter: 2018Q2

REPORT INFORMATION
  Report Type: Spontaneous
  Country: US (occurrence: US)
  Receive Date: 20180409
  Receipt Date: 20180409
  Transmission Date: 20180711
  Serious: Yes (Other)
  Sender: FDA-Public Use
  Company Number: US-BAYER-2018-061520

PATIENT
  Age: 68 Year
  Sex: Male
  Weight: 86.18 kg

DRUGS (4)
  1. ALEVE [Suspect]
     Active Substance: NAPROXEN SODIUM
     Indication: GOUT
     Dosage: 3 DF, QD 2 IN THE MORNING, 1 IN THE AFTERNOON
     Route: 048
     Dates: start: 201708, end: 201708
  2. LIPITOR [Concomitant]
     Active Substance: ATORVASTATIN CALCIUM
     Dosage: UNK
  3. ALLOPURINOL. [Concomitant]
     Active Substance: ALLOPURINOL
     Dosage: UNK
  4. ALEVE [Suspect]
     Active Substance: NAPROXEN SODIUM
     Indication: GOUT
     Dosage: UNK, PRN
     Route: 048
     Dates: start: 201708

REACTIONS (2)
  - Product use issue [None]
  - Haematemesis [Unknown]

NARRATIVE: CASE EVENT DATE: 201708
